FAERS Safety Report 16137660 (Version 1)
Quarter: 2019Q1

REPORT INFORMATION
  Report Type: Spontaneous
  Country: FR (occurrence: FR)
  Receive Date: 20190330
  Receipt Date: 20190330
  Transmission Date: 20190418
  Serious: Yes (Hospitalization)
  Sender: FDA-Public Use
  Company Number: FR-ROCHE-2293025

PATIENT
  Age: 81 Year
  Sex: Female
  Weight: 53 kg

DRUGS (6)
  1. SIMVASTATINE [Concomitant]
     Active Substance: SIMVASTATIN
     Route: 065
  2. UVEDOSE [Concomitant]
     Active Substance: CHOLECALCIFEROL
     Route: 065
  3. XELODA [Suspect]
     Active Substance: CAPECITABINE
     Indication: BREAST CANCER
     Route: 048
     Dates: start: 20190304, end: 20190307
  4. LEVOTHYROXINE SODIUM. [Concomitant]
     Active Substance: LEVOTHYROXINE SODIUM
     Route: 065
  5. STILNOX [Concomitant]
     Active Substance: ZOLPIDEM TARTRATE
     Route: 065
  6. INNOHEP [Concomitant]
     Active Substance: TINZAPARIN SODIUM
     Route: 065

REACTIONS (1)
  - Acute coronary syndrome [Recovered/Resolved]

NARRATIVE: CASE EVENT DATE: 20190306
